FAERS Safety Report 4696464-9 (Version None)
Quarter: 2005Q2

REPORT INFORMATION
  Report Type: 
  Country: None (occurrence: None)
  Receive Date: 20050620
  Receipt Date: 20050611
  Transmission Date: 20051028
  Serious: Yes (Hospitalization, Other)
  Sender: FDA-Public Use
  Company Number: 2005004121

PATIENT
  Age: 49 Year
  Sex: Male
  Weight: 113.3993 kg

DRUGS (11)
  1. LIPITOR [Suspect]
     Indication: BLOOD CHOLESTEROL
     Dosage: (20 MG),ORAL
     Route: 048
     Dates: start: 19990101, end: 20040601
  2. NEURONTIN [Suspect]
     Indication: ILL-DEFINED DISORDER
     Dates: start: 20040101, end: 20040101
  3. BEXTRA [Suspect]
     Indication: PAIN
     Dosage: ORAL
     Route: 048
     Dates: start: 20040601, end: 20040101
  4. SYNTHROID [Suspect]
     Indication: THYROID FUNCTION TEST ABNORMAL
     Dosage: (0.5 MG),ORAL
     Route: 048
  5. ACEON [Suspect]
     Indication: HYPERTENSION
  6. HYDROCHLOROTHIAZIDE [Suspect]
     Indication: HYPERTENSION
  7. TOPAMAX [Concomitant]
  8. ALEVE [Concomitant]
  9. ACETYLSALICYLIC ACID SRT [Concomitant]
  10. LEVOXYL [Concomitant]
  11. AMBIEN [Concomitant]

REACTIONS (31)
  - ADVERSE DRUG REACTION [None]
  - ANXIETY [None]
  - ASTHENIA [None]
  - BLOOD CREATINE PHOSPHOKINASE INCREASED [None]
  - BLOOD TESTOSTERONE DECREASED [None]
  - CHEST PAIN [None]
  - DEMYELINATION [None]
  - DEPRESSION [None]
  - DISTURBANCE IN ATTENTION [None]
  - FEELING ABNORMAL [None]
  - HYPERTENSION [None]
  - HYPOAESTHESIA [None]
  - IMPAIRED WORK ABILITY [None]
  - LETHARGY [None]
  - MALAISE [None]
  - MENTAL DISORDER [None]
  - MUSCLE DISORDER [None]
  - MUSCLE TIGHTNESS [None]
  - MUSCLE TWITCHING [None]
  - MUSCULAR WEAKNESS [None]
  - MYALGIA [None]
  - MYOCARDIAL INFARCTION [None]
  - NERVOUSNESS [None]
  - PAIN [None]
  - PAIN IN EXTREMITY [None]
  - SENSORY DISTURBANCE [None]
  - SLEEP APNOEA SYNDROME [None]
  - THERAPY NON-RESPONDER [None]
  - THINKING ABNORMAL [None]
  - THYROID FUNCTION TEST ABNORMAL [None]
  - VIRAL INFECTION [None]
